FAERS Safety Report 5939332-4 (Version None)
Quarter: 2008Q4

REPORT INFORMATION
  Report Type: 
  Country: None (occurrence: None)
  Receive Date: 20081103
  Receipt Date: 20081021
  Transmission Date: 20090506
  Serious: Yes (Other)
  Sender: FDA-Public Use
  Company Number: US-ELI_LILLY_AND_COMPANY-US200803004065

PATIENT
  Sex: Male
  Weight: 112.2 kg

DRUGS (1)
  1. ZYPREXA [Suspect]
     Indication: SCHIZOPHRENIA
     Dosage: 20 MG, UNK
     Dates: start: 20040201

REACTIONS (11)
  - BLOOD CHOLESTEROL ABNORMAL [None]
  - BLOOD TRIGLYCERIDES INCREASED [None]
  - CEREBROVASCULAR DISORDER [None]
  - DIABETES MELLITUS [None]
  - DIABETIC KETOACIDOSIS [None]
  - HYPERTENSION [None]
  - LACTIC ACIDOSIS [None]
  - METABOLIC ACIDOSIS [None]
  - METABOLIC DISORDER [None]
  - METABOLIC SYNDROME [None]
  - PANCREATITIS [None]
